FAERS Safety Report 24618575 (Version 1)
Quarter: 2024Q4

REPORT INFORMATION
  Report Type: Spontaneous
  Country: US (occurrence: None)
  Receive Date: 20241114
  Receipt Date: 20241114
  Transmission Date: 20250114
  Serious: Yes (Hospitalization)
  Sender: Public
  Company Number: None

PATIENT
  Age: 20 Month
  Sex: Female
  Weight: 13.4 kg

DRUGS (5)
  1. CYCLOPHOSPHAMIDE [Suspect]
     Active Substance: CYCLOPHOSPHAMIDE
     Dates: end: 20241029
  2. FLUDARABINE PHOSPHATE [Suspect]
     Active Substance: FLUDARABINE PHOSPHATE
     Dates: end: 20241021
  3. MYCOPHENOLATE MOFETIL [Suspect]
     Active Substance: MYCOPHENOLATE MOFETIL
     Dates: end: 20241108
  4. TACROLIMUS [Suspect]
     Active Substance: TACROLIMUS
     Dates: end: 20241105
  5. THIOTEPA [Suspect]
     Active Substance: THIOTEPA
     Dates: end: 20241022

REACTIONS (5)
  - Hepatomegaly [None]
  - Gallbladder enlargement [None]
  - Ascites [None]
  - Weight increased [None]
  - Venoocclusive disease [None]

NARRATIVE: CASE EVENT DATE: 20241107
